FAERS Safety Report 8747214 (Version 2)
Quarter: 2012Q4

REPORT INFORMATION
  Report Type: Report from Study
  Country: GB (occurrence: GB)
  Receive Date: 20120827
  Receipt Date: 20121205
  Transmission Date: 20130627
  Serious: Yes (Other)
  Sender: FDA-Public Use
  Company Number: GB-009507513-1208GBR009892

PATIENT
  Age: 62 Year
  Sex: Male
  Weight: 79 kg

DRUGS (7)
  1. EZETIMIBE (+) SIMVASTATIN [Suspect]
     Indication: ACUTE CORONARY SYNDROME
     Dosage: 10-40 mg, qd
     Route: 048
     Dates: start: 20070507
  2. GTN [Concomitant]
     Dosage: total daily dose: 400 Microgram
     Route: 060
     Dates: start: 20070501
  3. GTN [Concomitant]
     Dosage: prn
     Route: 060
     Dates: start: 20070501
  4. ATENOLOL [Concomitant]
     Dosage: total daily dose: 50 mg
     Route: 048
     Dates: start: 20070501
  5. LOSARTAN POTASSIUM [Concomitant]
     Dosage: total daily dose: 50 mg
     Route: 048
     Dates: start: 20070501
  6. ASPIRIN [Concomitant]
     Dosage: total daily dose: 75 mg
     Route: 048
     Dates: start: 20070501
  7. OMEPRAZOLE [Concomitant]
     Dosage: total daily dose: 20 mg
     Route: 048
     Dates: start: 20100813

REACTIONS (1)
  - Prostate cancer [Recovered/Resolved]
